FAERS Safety Report 19012008 (Version 1)
Quarter: 2021Q1

REPORT INFORMATION
  Report Type: Spontaneous
  Country: ES (occurrence: ES)
  Receive Date: 20210315
  Receipt Date: 20210315
  Transmission Date: 20210420
  Serious: Yes (Life-Threatening, Hospitalization)
  Sender: FDA-Public Use
  Company Number: ES-ASTRAZENECA-2021A130749

PATIENT
  Age: 27 Year
  Sex: Female

DRUGS (1)
  1. QUETIAPINA [Suspect]
     Active Substance: QUETIAPINE
     Indication: SUICIDE ATTEMPT
     Dosage: 2.3G ONCE/SINGLE ADMINISTRATION
     Route: 048
     Dates: start: 20210114, end: 20210114

REACTIONS (2)
  - Respiratory acidosis [Recovered/Resolved]
  - Acute respiratory distress syndrome [Recovered/Resolved]

NARRATIVE: CASE EVENT DATE: 20210114
